FAERS Safety Report 5688300-9 (Version None)
Quarter: 2008Q1

REPORT INFORMATION
  Report Type: 
  Country: None (occurrence: None)
  Receive Date: 20080331
  Receipt Date: 20080331
  Transmission Date: 20080703
  Serious: Yes (Hospitalization)
  Sender: FDA-Public Use
  Company Number: None

PATIENT
  Age: 53 Year
  Sex: Female
  Weight: 90.7194 kg

DRUGS (17)
  1. HEPARIN [Suspect]
     Indication: THROMBOSIS PROPHYLAXIS
     Dosage: BID IM
     Route: 030
     Dates: start: 20080205, end: 20080214
  2. ONDATSERON [Concomitant]
  3. VALIUM [Concomitant]
  4. EFFEXOR [Concomitant]
  5. LEXAPRO [Concomitant]
  6. HYDROCHLOROTHIAZIDE [Concomitant]
  7. METAPROLOL [Concomitant]
  8. PRIMIDONE [Concomitant]
  9. PANTOPRAZOLE SODIUM [Concomitant]
  10. REGULAR INSULIN [Concomitant]
  11. LANTUS [Concomitant]
  12. DIMORPHENONE [Concomitant]
  13. MORPHINE [Concomitant]
  14. BUSPAR [Concomitant]
  15. VITAMIN D WITH CALCIUM [Concomitant]
  16. FERROUS SULFATE TAB [Concomitant]
  17. IMDUR-LONG ACTING NITROGLYCERIN- [Concomitant]

REACTIONS (6)
  - CONDITION AGGRAVATED [None]
  - CRANIAL NERVE DISORDER [None]
  - DIARRHOEA [None]
  - NAUSEA [None]
  - NEURALGIA [None]
  - VOMITING [None]
